FAERS Safety Report 7232095-4 (Version None)
Quarter: 2011Q1

REPORT INFORMATION
  Report Type: 
  Country: None (occurrence: None)
  Receive Date: 20110119
  Receipt Date: 20110113
  Transmission Date: 20110831
  Serious: Yes (Other)
  Sender: FDA-Public Use
  Company Number: US-ASTRAZENECA-2008UW12262

PATIENT
  Age: 14136 Day
  Sex: Female
  Weight: 97.1 kg

DRUGS (22)
  1. SEROQUEL [Suspect]
     Route: 048
     Dates: start: 20080601
  2. LORAZEPAM [Concomitant]
     Dates: start: 20031229
  3. AMBIEN [Concomitant]
     Dates: start: 20031229
  4. LAMICTAL [Concomitant]
     Dates: start: 20080601
  5. EFFEXOR [Concomitant]
     Dosage: 37.5 MG-75 MG
     Dates: start: 20010918
  6. SEROQUEL [Suspect]
     Route: 048
     Dates: start: 20041001, end: 20041201
  7. CARISOPRODOL [Concomitant]
     Dates: start: 20031229
  8. AMARYL [Concomitant]
     Dosage: 2 MG-4 MG
     Dates: start: 20050427
  9. SEROQUEL [Suspect]
     Route: 048
     Dates: start: 20020301, end: 20020701
  10. TRAZODONE HCL [Concomitant]
     Dosage: 50MG, 100MG, 150MG
     Dates: start: 20000901
  11. SEROQUEL [Suspect]
     Dosage: 25 MG-300 MG
     Route: 048
     Dates: start: 20020311
  12. ALLI [Concomitant]
     Dates: start: 20070101
  13. WELLBUTRIN [Concomitant]
     Dosage: 150MG-300MG
     Dates: start: 20031229
  14. SEROQUEL [Suspect]
     Indication: DEPRESSION
     Route: 048
     Dates: start: 20000101, end: 20020301
  15. SEROQUEL [Suspect]
     Route: 048
     Dates: start: 20020901, end: 20040501
  16. SEROQUEL [Suspect]
     Route: 048
     Dates: start: 20040501, end: 20060101
  17. CYMBALTA [Concomitant]
     Dosage: 40MG, 60MG
     Dates: start: 20080801
  18. METFORMIN [Concomitant]
     Dosage: 500 MG-1500 MG
     Dates: start: 20060413
  19. VASOTEC [Concomitant]
     Indication: RENAL DISORDER
     Dates: start: 20050615
  20. SEROQUEL [Suspect]
     Route: 048
     Dates: start: 20040301, end: 20040401
  21. ABILIFY [Concomitant]
     Dates: start: 20050701, end: 20050901
  22. WELLBUTRIN [Concomitant]
     Dates: start: 20020101, end: 20080801

REACTIONS (10)
  - UTERINE DISORDER [None]
  - PANCREATIC CYST [None]
  - NEOPLASM [None]
  - NEUROPATHY PERIPHERAL [None]
  - RENAL CYST [None]
  - SPLENIC CYST [None]
  - CYST [None]
  - OBESITY [None]
  - BLOOD TRIGLYCERIDES INCREASED [None]
  - TYPE 2 DIABETES MELLITUS [None]
